FAERS Safety Report 18358887 (Version 2)
Quarter: 2020Q4

REPORT INFORMATION
  Report Type: Spontaneous
  Country: US (occurrence: US)
  Receive Date: 20201008
  Receipt Date: 20201013
  Transmission Date: 20210114
  Serious: Yes (Death)
  Sender: FDA-Public Use
  Company Number: US-KARYOPHARM-2020KPT001007

PATIENT

DRUGS (3)
  1. ZOFRAN [Concomitant]
     Active Substance: ONDANSETRON HYDROCHLORIDE
     Indication: NAUSEA
  2. XPOVIO [Suspect]
     Active Substance: SELINEXOR
     Indication: PLASMA CELL MYELOMA
     Dosage: 100 MG, WEEKLY
     Route: 048
     Dates: start: 20200822, end: 202009
  3. VARUBI [Concomitant]
     Active Substance: ROLAPITANT
     Indication: NAUSEA
     Dosage: 180 MG, 1X/2 WEEKS
     Route: 048
     Dates: start: 20200910

REACTIONS (8)
  - Headache [Unknown]
  - Death [Fatal]
  - Thrombocytopenia [Not Recovered/Not Resolved]
  - Nausea [Not Recovered/Not Resolved]
  - Decreased appetite [Unknown]
  - Pain [Unknown]
  - Insomnia [Unknown]
  - Anaemia [Unknown]

NARRATIVE: CASE EVENT DATE: 202008
